FAERS Safety Report 25869910 (Version 1)
Quarter: 2025Q4

REPORT INFORMATION
  Report Type: Spontaneous
  Country: EU (occurrence: EU)
  Receive Date: 20251001
  Receipt Date: 20251001
  Transmission Date: 20260118
  Serious: Yes (Other)
  Sender: MALLINCKRODT
  Company Number: EU-MALLINCKRODT-MNK202506053

PATIENT
  Age: 5 Year
  Sex: Male

DRUGS (6)
  1. UVADEX [Suspect]
     Active Substance: METHOXSALEN
     Indication: Graft versus host disease in gastrointestinal tract
     Dosage: UNKNOWN
     Route: 050
  2. UVADEX [Suspect]
     Active Substance: METHOXSALEN
     Indication: Acute graft versus host disease in skin
  3. MYCOPHENOLATE MOFETIL [Concomitant]
     Active Substance: MYCOPHENOLATE MOFETIL
     Dosage: UNKNOWN
  4. MYCOPHENOLATE MOFETIL [Concomitant]
     Active Substance: MYCOPHENOLATE MOFETIL
  5. ETANERCEPT [Concomitant]
     Active Substance: ETANERCEPT
     Dosage: UNKNOWN
  6. ETANERCEPT [Concomitant]
     Active Substance: ETANERCEPT

REACTIONS (4)
  - Pneumatosis intestinalis [Recovered/Resolved]
  - Pneumothorax [Unknown]
  - Pneumoperitoneum [Recovered/Resolved]
  - Product use in unapproved indication [Unknown]
